FAERS Safety Report 17360699 (Version 1)
Quarter: 2020Q1

REPORT INFORMATION
  Report Type: Spontaneous
  Country: US (occurrence: US)
  Receive Date: 20200203
  Receipt Date: 20200203
  Transmission Date: 20200409
  Serious: Yes (Death, Hospitalization, Other)
  Sender: FDA-Public Use
  Company Number: US-TARO-2020TAR00102

PATIENT
  Sex: Male
  Weight: 86 kg

DRUGS (1)
  1. NORTRIPTYLINE HYDROCHLORIDE. [Suspect]
     Active Substance: NORTRIPTYLINE HYDROCHLORIDE
     Indication: PRODUCT USED FOR UNKNOWN INDICATION
     Dosage: APPROXIMATELY 150 TABLETS OF 100 MG NORTRIPTYLINE
     Route: 065

REACTIONS (8)
  - Intentional overdose [Unknown]
  - Generalised tonic-clonic seizure [Recovering/Resolving]
  - Pulmonary oedema [Fatal]
  - Acute respiratory distress syndrome [Fatal]
  - Depressed level of consciousness [Unknown]
  - Circulatory collapse [Fatal]
  - Toxicity to various agents [Unknown]
  - Electrocardiogram QRS complex prolonged [Not Recovered/Not Resolved]
